FAERS Safety Report 8375685-8 (Version None)
Quarter: 2012Q2

REPORT INFORMATION
  Report Type: 
  Country: None (occurrence: None)
  Receive Date: 20120517
  Receipt Date: 20120517
  Transmission Date: 20120825
  Serious: Yes (Hospitalization)
  Sender: FDA-Public Use
  Company Number: None

PATIENT
  Age: 66 Year
  Sex: Male
  Weight: 131.9 kg

DRUGS (1)
  1. MORPHINE [Suspect]
     Indication: PAIN
     Dosage: 15 MG OTHER PO
     Route: 048
     Dates: start: 20120416, end: 20120418

REACTIONS (3)
  - OXYGEN SATURATION DECREASED [None]
  - MENTAL STATUS CHANGES [None]
  - SOMNOLENCE [None]
